FAERS Safety Report 8607808-7 (Version None)
Quarter: 2012Q3

REPORT INFORMATION
  Report Type: 
  Country: None (occurrence: None)
  Receive Date: 20120821
  Receipt Date: 20120815
  Transmission Date: 20120928
  Serious: Yes (Hospitalization, Other)
  Sender: FDA-Public Use
  Company Number: PHHY2012AR066227

PATIENT
  Sex: Male

DRUGS (3)
  1. DIOVAN [Suspect]
     Dosage: 160 MG, UNK
  2. DIOVAN [Suspect]
     Indication: HYPERTENSION
     Dosage: 320 MG DAILY
     Dates: start: 20100101, end: 20120614
  3. DIOVAN [Suspect]
     Dosage: 0.5 DF (160 MG) DAILY

REACTIONS (6)
  - RIB FRACTURE [None]
  - TRAUMATIC LUNG INJURY [None]
  - JAW DISORDER [None]
  - ACCIDENT [None]
  - WRONG TECHNIQUE IN DRUG USAGE PROCESS [None]
  - RENAL DISORDER [None]
